FAERS Safety Report 9468945 (Version 1)
Quarter: 2013Q3

REPORT INFORMATION
  Report Type: Spontaneous
  Country: FR (occurrence: FR)
  Receive Date: 20130821
  Receipt Date: 20130821
  Transmission Date: 20140515
  Serious: Yes (Hospitalization)
  Sender: FDA-Public Use
  Company Number: FR-TEVA-427061ISR

PATIENT
  Age: 59 Year
  Sex: Female

DRUGS (5)
  1. PACLITAXEL [Suspect]
     Indication: OVARIAN CANCER RECURRENT
     Route: 065
  2. CARBOPLATIN [Suspect]
     Indication: OVARIAN CANCER RECURRENT
     Route: 065
  3. DOXORUBICIN NOS [Suspect]
     Indication: OVARIAN CANCER RECURRENT
     Route: 065
  4. BEVACIZUMAB [Suspect]
     Indication: OVARIAN CANCER RECURRENT
     Route: 065
  5. CYCLOPHOSPHAMIDE [Suspect]
     Indication: OVARIAN CANCER RECURRENT
     Route: 065

REACTIONS (3)
  - Cardiac failure acute [Not Recovered/Not Resolved]
  - Oliguria [Unknown]
  - Anuria [Unknown]
